FAERS Safety Report 8339375-X (Version None)
Quarter: 2012Q2

REPORT INFORMATION
  Report Type: 
  Country: None (occurrence: None)
  Receive Date: 20120507
  Receipt Date: 20120425
  Transmission Date: 20120825
  Serious: Yes (Hospitalization, Other)
  Sender: FDA-Public Use
  Company Number: GB-TEVA-333947ISR

PATIENT
  Age: 50 Year
  Sex: Female

DRUGS (5)
  1. CLOZARIL [Suspect]
     Indication: SCHIZOPHRENIA
     Dosage: 250 MG DAILY
     Route: 048
     Dates: start: 20111208
  2. CLOZARIL [Suspect]
     Dosage: 150 MG DAILY
     Route: 048
  3. VALPROATE SODIUM [Suspect]
     Dosage: 450 MG DAILY
  4. VALPROIC ACID [Suspect]
     Indication: GRAND MAL CONVULSION
     Dosage: 1200 MG, UNK
  5. FLUOXETINE [Concomitant]
     Indication: DEPRESSION
     Dosage: UNK

REACTIONS (6)
  - NEUTROPHIL COUNT DECREASED [None]
  - GRAND MAL CONVULSION [None]
  - ATAXIA [None]
  - DYSKINESIA [None]
  - DIZZINESS [None]
  - MYOCLONUS [None]
